FAERS Safety Report 9265456 (Version 2)
Quarter: 2013Q3

REPORT INFORMATION
  Report Type: Report from Study
  Country: US (occurrence: US)
  Receive Date: 20130501
  Receipt Date: 20130916
  Transmission Date: 20140515
  Serious: Yes (Hospitalization)
  Sender: FDA-Public Use
  Company Number: US-PFIZER INC-2013124114

PATIENT
  Age: 51 Year
  Sex: Male
  Weight: 55.33 kg

DRUGS (9)
  1. TORISEL [Suspect]
     Indication: HEPATIC CANCER
     Dosage: 25 MG, CYCLIC (DAY 1, 8, 15 EVERY 21 DAYS)
     Route: 042
     Dates: start: 20130404, end: 20130418
  2. BENADRYL [Concomitant]
     Indication: PREMEDICATION
     Dosage: 50 MG, CYCLIC (DAY 1, 8, 15 EVERY 21 DAYS)
     Route: 042
  3. AMLODIPINE BESILATE [Concomitant]
     Dosage: 10 MG, DAILY
     Route: 048
     Dates: start: 201301
  4. FOLIC ACID [Concomitant]
     Dosage: 1 MG, 2X/DAY
     Route: 048
     Dates: start: 201210
  5. LISINOPRIL [Concomitant]
     Dosage: 10 MG, DAILY
     Route: 048
     Dates: start: 201302
  6. METOPROLOL SUCCINATE SR [Concomitant]
     Dosage: 25 MG,  DAILY
     Dates: start: 201210
  7. MORPHINE [Concomitant]
     Indication: PAIN
     Dosage: 30 MG, EVERY 4 HRS AS NEEDED
     Route: 048
     Dates: start: 20130404
  8. OMEPRAZOLE [Concomitant]
     Dosage: 40 MG, DAILY
     Route: 048
     Dates: start: 201210
  9. VITAMIN B1 [Concomitant]
     Dosage: 250 MG, DAILY
     Route: 048
     Dates: start: 201210

REACTIONS (4)
  - Hypotension [Recovered/Resolved]
  - Hypovolaemia [Recovered/Resolved]
  - Diarrhoea [Recovered/Resolved]
  - Vomiting [Recovered/Resolved]
